FAERS Safety Report 15328607 (Version 2)
Quarter: 2018Q3

REPORT INFORMATION
  Report Type: Spontaneous
  Country: MY (occurrence: MY)
  Receive Date: 20180829
  Receipt Date: 20180921
  Transmission Date: 20181010
  Serious: No
  Sender: FDA-Public Use
  Company Number: MY-IGSA-SR10006585

PATIENT
  Age: 56 Year
  Sex: Female
  Weight: 53.1 kg

DRUGS (3)
  1. ALBUTEIN [Suspect]
     Active Substance: ALBUMIN HUMAN
     Indication: HYPOALBUMINAEMIA
     Dosage: 50 ML, SINGLE
     Route: 042
     Dates: start: 20170212, end: 20170212
  2. PARACETAMOL [Concomitant]
     Active Substance: ACETAMINOPHEN
  3. MAGNESIUM TRISILICATE              /00196001/ [Concomitant]

REACTIONS (1)
  - Urticaria [Recovered/Resolved]

NARRATIVE: CASE EVENT DATE: 20170212
